FAERS Safety Report 24700214 (Version 1)
Quarter: 2024Q4

REPORT INFORMATION
  Report Type: Spontaneous
  Country: GB (occurrence: GB)
  Receive Date: 20241205
  Receipt Date: 20241205
  Transmission Date: 20250115
  Serious: Yes (Other)
  Sender: RANBAXY
  Company Number: GB-SUN PHARMACEUTICAL INDUSTRIES LTD-2024R1-482292

PATIENT
  Age: 37 Year
  Sex: Female

DRUGS (2)
  1. CARIPRAZINE [Suspect]
     Active Substance: CARIPRAZINE
     Indication: Borderline personality disorder
     Dosage: 6 MILLIGRAM
     Route: 065
  2. CLOZAPINE [Concomitant]
     Active Substance: CLOZAPINE
     Indication: Borderline personality disorder
     Dosage: 325 MILLIGRAM
     Route: 065

REACTIONS (1)
  - Therapeutic response decreased [Unknown]
